FAERS Safety Report 13163692 (Version 3)
Quarter: 2017Q1

REPORT INFORMATION
  Report Type: Spontaneous
  Country: IL (occurrence: IL)
  Receive Date: 20170130
  Receipt Date: 20170308
  Transmission Date: 20170428
  Serious: Yes (Other)
  Sender: FDA-Public Use
  Company Number: IL-TEVA-731736ACC

PATIENT
  Age: 72 Year
  Sex: Female

DRUGS (10)
  1. CARDILOC [Concomitant]
     Active Substance: BISOPROLOL FUMARATE
     Route: 048
  2. FUSID 40MG [Concomitant]
     Active Substance: FUROSEMIDE
     Dosage: 40 MILLIGRAM DAILY;
     Route: 048
     Dates: start: 20121104
  3. LOSEC 20MG [Concomitant]
     Dates: start: 20150510
  4. DISOTHIAZIDE 25MG [Concomitant]
     Dosage: 12.5 MILLIGRAM DAILY;
     Route: 048
  5. NEXIUM [Concomitant]
     Active Substance: ESOMEPRAZOLE MAGNESIUM
     Dosage: 20 MILLIGRAM DAILY;
     Route: 048
  6. IMATINIB TEVA [Suspect]
     Active Substance: IMATINIB
     Indication: CHRONIC MYELOID LEUKAEMIA
     Dosage: 400 MILLIGRAM DAILY;
     Route: 048
     Dates: start: 2016, end: 201612
  7. CARDILOC [Concomitant]
     Active Substance: BISOPROLOL FUMARATE
     Dosage: 2.5 MILLIGRAM DAILY;
     Route: 048
     Dates: start: 20151110
  8. SLOW K SR [Concomitant]
     Dosage: 1200 MILLIGRAM DAILY;
     Route: 048
  9. SPIRONOLACTONE 25MG [Concomitant]
     Active Substance: SPIRONOLACTONE
     Dates: start: 20150106
  10. VITA-CAL [Concomitant]
     Route: 048

REACTIONS (7)
  - Product substitution issue [Unknown]
  - Haemorrhage [Recovering/Resolving]
  - Eye pain [Recovering/Resolving]
  - Philadelphia chromosome positive [Unknown]
  - Visual acuity reduced [Recovering/Resolving]
  - Lacrimation increased [Recovering/Resolving]
  - Periorbital oedema [Recovering/Resolving]

NARRATIVE: CASE EVENT DATE: 2016
